FAERS Safety Report 8776689 (Version 2)
Quarter: 2012Q4

REPORT INFORMATION
  Report Type: 
  Country: US (occurrence: US)
  Receive Date: 20120904
  Receipt Date: 20121001
  Transmission Date: 20130627
  Serious: Yes (Death)
  Sender: FDA-Public Use
  Company Number: US-ELI_LILLY_AND_COMPANY-US201209000392

PATIENT
  Age: 23 Year
  Sex: Male
  Weight: 74.38 kg

DRUGS (5)
  1. STRATTERA [Suspect]
     Indication: ANXIETY
     Dosage: 25 mg, qd
     Route: 048
     Dates: start: 20111202
  2. STRATTERA [Suspect]
     Dosage: 40 mg, UNK
  3. STRATTERA [Suspect]
     Dosage: 60 mg, UNK
  4. STRATTERA [Suspect]
     Dosage: 80 mg, qd
  5. KLONOPIN [Concomitant]
     Indication: ANXIETY
     Dosage: 2 mg, prn

REACTIONS (1)
  - Completed suicide [Fatal]
